FAERS Safety Report 13728870 (Version 1)
Quarter: 2017Q3

REPORT INFORMATION
  Report Type: Other
  Country: US (occurrence: US)
  Receive Date: 20170707
  Receipt Date: 20170707
  Transmission Date: 20171127
  Serious: Yes (Hospitalization)
  Sender: FDA-Public Use
  Company Number: US-ORCHID HEALTHCARE-2023057

PATIENT
  Age: 18 Year
  Sex: Female

DRUGS (3)
  1. 4-FLUOROAMPHETAMINE [Suspect]
     Active Substance: 4-FLUOROAMPHETAMINE
     Route: 048
  2. METHYLPHENIDATE. [Suspect]
     Active Substance: METHYLPHENIDATE
     Route: 065
  3. MODAFINIL. [Suspect]
     Active Substance: MODAFINIL
     Route: 065

REACTIONS (3)
  - Congestive cardiomyopathy [Recovering/Resolving]
  - Heart injury [Recovering/Resolving]
  - Drug use disorder [Unknown]
